FAERS Safety Report 4679517-0 (Version None)
Quarter: 2005Q2

REPORT INFORMATION
  Report Type: 
  Country: None (occurrence: None)
  Receive Date: 20050602
  Receipt Date: 20050524
  Transmission Date: 20051028
  Serious: Yes (Other)
  Sender: FDA-Public Use
  Company Number: US-SP-2005-00992

PATIENT
  Age: 14 Year
  Sex: Male

DRUGS (3)
  1. TUBERSOL [Suspect]
     Route: 030
     Dates: start: 20050523
  2. TUBERSOL [Suspect]
     Route: 030
     Dates: start: 20050523
  3. DIPHTHERIA AND TETANUS TOXOIDS [Concomitant]
     Indication: IMMUNISATION

REACTIONS (3)
  - ASTHMA [None]
  - WHEEZING [None]
  - WRONG DRUG ADMINISTERED [None]
